FAERS Safety Report 13244430 (Version 1)
Quarter: 2017Q1

REPORT INFORMATION
  Report Type: Spontaneous
  Country: US (occurrence: US)
  Receive Date: 20170216
  Receipt Date: 20170216
  Transmission Date: 20170428
  Serious: No
  Sender: FDA-Public Use
  Company Number: US-JAZZ-2017-US-000026

PATIENT
  Sex: Female

DRUGS (19)
  1. FISH OIL [Concomitant]
     Active Substance: FISH OIL
  2. XYREM [Suspect]
     Active Substance: SODIUM OXYBATE
     Dosage: 4.5G, BID
     Route: 048
     Dates: start: 201302
  3. BENADRYL ALLERGY [Concomitant]
     Active Substance: DIPHENHYDRAMINE HYDROCHLORIDE
  4. SERMORELIN ACETATE. [Concomitant]
     Active Substance: SERMORELIN ACETATE
  5. LIOTHYRONINE [Concomitant]
     Active Substance: LIOTHYRONINE
  6. PROGESTERONE. [Concomitant]
     Active Substance: PROGESTERONE
  7. LORAZEPAM. [Concomitant]
     Active Substance: LORAZEPAM
  8. TRAZODONE [Concomitant]
     Active Substance: TRAZODONE HYDROCHLORIDE
  9. ZOLPIDEM TARTRATE. [Concomitant]
     Active Substance: ZOLPIDEM TARTRATE
  10. CHOLESTOFF ORIGINAL [Concomitant]
  11. ADRENAL [Concomitant]
     Active Substance: EPINEPHRINE
  12. LEXAPRO [Concomitant]
     Active Substance: ESCITALOPRAM OXALATE
  13. CALCIUM + D3                       /00944201/ [Concomitant]
     Active Substance: CALCIUM CARBONATE\CHOLECALCIFEROL
  14. XYREM [Suspect]
     Active Substance: SODIUM OXYBATE
     Indication: CHRONIC FATIGUE SYNDROME
     Dosage: 2.25G, BID
     Route: 048
     Dates: start: 201209, end: 2013
  15. SEROTONIN [Concomitant]
     Active Substance: SEROTONIN
  16. VITAMIN D                          /00107901/ [Concomitant]
     Active Substance: ERGOCALCIFEROL
  17. 5-HTP                              /00439301/ [Concomitant]
  18. LEXAPRO [Concomitant]
     Active Substance: ESCITALOPRAM OXALATE
  19. ESTRIOL [Concomitant]
     Active Substance: ESTRIOL

REACTIONS (1)
  - Wrong technique in product usage process [Unknown]
